FAERS Safety Report 6165547-9 (Version None)
Quarter: 2009Q2

REPORT INFORMATION
  Report Type: 
  Country: None (occurrence: None)
  Receive Date: 20090423
  Receipt Date: 20090415
  Transmission Date: 20091009
  Serious: Yes (Other)
  Sender: FDA-Public Use
  Company Number: PT-BRISTOL-MYERS SQUIBB COMPANY-14589162

PATIENT
  Sex: Female

DRUGS (1)
  1. AMPHOTERICIN B [Suspect]
     Indication: HISTOPLASMOSIS

REACTIONS (3)
  - DISEASE PROGRESSION [None]
  - HYPOKALAEMIA [None]
  - VOMITING [None]
